FAERS Safety Report 8485175-X (Version None)
Quarter: 2012Q2

REPORT INFORMATION
  Report Type: 
  Country: None (occurrence: None)
  Receive Date: 20120625
  Receipt Date: 20120607
  Transmission Date: 20120825
  Serious: Yes (Other)
  Sender: FDA-Public Use
  Company Number: US-20120028

PATIENT

DRUGS (5)
  1. NEOMYCIN SULFATE TAB [Concomitant]
  2. METRONIDAZOLE [Concomitant]
  3. LIPIODOL (ETHIODIZED OIL) (ETHIODIZED OIL) [Suspect]
     Indication: THERAPEUTIC EMBOLISATION
  4. LEVOFLOXACIN [Concomitant]
  5. ERYTHROMYCIN [Concomitant]

REACTIONS (1)
  - LIVER ABSCESS [None]
